FAERS Safety Report 8096477-3 (Version None)
Quarter: 2012Q1

REPORT INFORMATION
  Report Type: 
  Country: None (occurrence: None)
  Receive Date: 20120129
  Receipt Date: 20111221
  Transmission Date: 20120608
  Serious: No
  Sender: FDA-Public Use
  Company Number: US-ABBOTT-11P-163-0885491-00

PATIENT
  Age: 55 Year
  Sex: Female

DRUGS (9)
  1. DILTIAZEM [Concomitant]
     Indication: BLOOD PRESSURE
     Dosage: 240/24MG QD
  2. HUMIRA [Suspect]
     Indication: RHEUMATOID ARTHRITIS
     Dates: start: 20111218
  3. METHOTREXATE [Concomitant]
     Indication: PRODUCT USED FOR UNKNOWN INDICATION
  4. CALCIUM W/VITAMIN D [Concomitant]
     Indication: PRODUCT USED FOR UNKNOWN INDICATION
  5. FOLIC ACID [Concomitant]
     Indication: PRODUCT USED FOR UNKNOWN INDICATION
     Dosage: 1 TABLET QD
  6. POTASSIUM [Concomitant]
     Indication: PRODUCT USED FOR UNKNOWN INDICATION
     Dosage: 10 MEQ QD
  7. SIMVASTATIN [Concomitant]
     Indication: BLOOD CHOLESTEROL
  8. XANAX [Concomitant]
     Indication: ANXIETY
  9. TRIAMTERENE AND HYDROCHLOROTHIAZIDE [Concomitant]
     Indication: BLOOD PRESSURE
     Dosage: 35.5/25MG QD

REACTIONS (4)
  - SWELLING [None]
  - MUSCLE SPASMS [None]
  - MOVEMENT DISORDER [None]
  - PAIN [None]
